FAERS Safety Report 8644071 (Version 2)
Quarter: 2014Q1

REPORT INFORMATION
  Report Type: Spontaneous
  Country: US (occurrence: None)
  Receive Date: 20120323
  Receipt Date: 20130305
  Transmission Date: 20141002
  Serious: Yes (Hospitalization)
  Sender: FDA-Public Use
  Company Number: 163-21880-11103210

PATIENT
  Age: 61 Year
  Sex: Male

DRUGS (13)
  1. REVLIMID [Suspect]
     Indication: PLASMA CELL MYELOMA
     Dosage: 15 MG, DAILY FOR 21 DAYS - OFF 7,  PO
     Route: 048
     Dates: start: 20110418, end: 201110
  2. CALCITRIOL [Concomitant]
  3. DEXAMETHASONE [Concomitant]
  4. VALIUM (DIAZEPAM) [Concomitant]
  5. LOVENOX (HEPARIN-FRACTION, SODIUM SALT) [Concomitant]
  6. DURAGESIC (FENTANYL) (POULICE OR PATCH) [Concomitant]
  7. MAGNESIUM OXIDE [Concomitant]
  8. AREDIA (PAMIDRONATE DISODIUM) [Concomitant]
  9. KCL (POTASSIUM CHLORIDE0 (TABLETS) [Concomitant]
  10. TRAZODONE [Concomitant]
  11. DILAUDID (HYDROMORPHONE HYDROCHLORIDE) [Concomitant]
  12. PROTNIX [Concomitant]
  13. FLAGYL (METRONIDAZOLE) [Concomitant]

REACTIONS (1)
  - Subcutaneous abscess [None]
